FAERS Safety Report 25790797 (Version 1)
Quarter: 2025Q3

REPORT INFORMATION
  Report Type: Spontaneous
  Country: US (occurrence: None)
  Receive Date: 20250910
  Receipt Date: 20250910
  Transmission Date: 20251020
  Serious: Yes (Death)
  Sender: FDA-CTU
  Company Number: None

PATIENT
  Age: 56 Year
  Sex: Male

DRUGS (10)
  1. SOFOSBUVIR\VELPATASVIR [Suspect]
     Active Substance: SOFOSBUVIR\VELPATASVIR
     Indication: Hepatitis C
     Dosage: ONCE TABLET DAILY ORAL ?
     Route: 048
     Dates: start: 20250729, end: 20250824
  2. ONDANSETRON [Concomitant]
     Active Substance: ONDANSETRON
  3. PROPRANOLOL [Concomitant]
     Active Substance: PROPRANOLOL HYDROCHLORIDE
  4. MIDODRINE [Concomitant]
     Active Substance: MIDODRINE
  5. XIFAXAN [Concomitant]
     Active Substance: RIFAXIMIN
  6. RIBAVIRIN [Concomitant]
     Active Substance: RIBAVIRIN
  7. SPIRONOLACTONE [Concomitant]
     Active Substance: SPIRONOLACTONE
  8. LACTULOSE [Concomitant]
     Active Substance: LACTULOSE
  9. PANTOPRAZOLE [Concomitant]
     Active Substance: PANTOPRAZOLE
  10. FUROSEMIDE [Concomitant]
     Active Substance: FUROSEMIDE

REACTIONS (1)
  - Death [None]

NARRATIVE: CASE EVENT DATE: 20250824
